FAERS Safety Report 15900974 (Version 2)
Quarter: 2019Q1

REPORT INFORMATION
  Report Type: Spontaneous
  Country: NL (occurrence: NL)
  Receive Date: 20190201
  Receipt Date: 20190307
  Transmission Date: 20190417
  Serious: Yes (Other)
  Sender: FDA-Public Use
  Company Number: NL-ASTRAZENECA-2019SE14914

PATIENT
  Sex: Male

DRUGS (34)
  1. QUETIAPINE. [Interacting]
     Active Substance: QUETIAPINE
     Indication: BIPOLAR DISORDER
     Route: 048
  2. TRANYLCYPROMINE [Interacting]
     Active Substance: TRANYLCYPROMINE
     Indication: DRUG INEFFECTIVE
     Dosage: 1.5 TABLETS (30 MG) PER DAY IN THE MORNING
     Route: 048
     Dates: start: 2017, end: 2017
  3. DOSTINEX [Concomitant]
     Active Substance: CABERGOLINE
     Indication: PROLACTIN-PRODUCING PITUITARY TUMOUR
  4. TRANYLCYPROMINE [Interacting]
     Active Substance: TRANYLCYPROMINE
     Indication: DRUG INEFFECTIVE
     Dosage: 0.5 MG TABLETS IN THE MORNING
     Route: 048
     Dates: start: 201808, end: 201809
  5. TRANYLCYPROMINE [Interacting]
     Active Substance: TRANYLCYPROMINE
     Indication: BIPOLAR II DISORDER
     Dosage: 2 TABLETS (40 MG) PER DAY IN THE MORNING
     Route: 048
     Dates: start: 2017, end: 2017
  6. TRANYLCYPROMINE [Interacting]
     Active Substance: TRANYLCYPROMINE
     Indication: DRUG INEFFECTIVE
     Dosage: 3 TABLETS (60 MG) PER DAY IN THE MORNING
     Route: 048
     Dates: start: 2017, end: 2017
  7. TRANYLCYPROMINE [Interacting]
     Active Substance: TRANYLCYPROMINE
     Indication: BIPOLAR II DISORDER
     Dosage: 50 MG, 2.5 TABLETS A DAY IN THE MORNING
     Route: 048
     Dates: start: 201901
  8. TRANYLCYPROMINE [Interacting]
     Active Substance: TRANYLCYPROMINE
     Indication: DRUG INEFFECTIVE
     Dosage: HALF A TABLET (10 MG) A DAY IN THE MORNING
     Route: 048
     Dates: start: 201707, end: 2017
  9. TRANYLCYPROMINE [Interacting]
     Active Substance: TRANYLCYPROMINE
     Indication: BIPOLAR II DISORDER
     Dosage: 2.5 TABLETS (50 MG) PER DAY IN THE MORNING
     Route: 048
     Dates: start: 2017, end: 2017
  10. TRANYLCYPROMINE [Interacting]
     Active Substance: TRANYLCYPROMINE
     Indication: BIPOLAR II DISORDER
     Dosage: 1.5 TABLETS (30 MG) PER DAY IN THE MORNING
     Route: 048
     Dates: start: 2017, end: 2017
  11. TRANYLCYPROMINE [Interacting]
     Active Substance: TRANYLCYPROMINE
     Indication: BIPOLAR II DISORDER
     Dosage: HALF A TABLET (10 MG) A DAY IN THE MORNING
     Route: 048
     Dates: start: 201707, end: 2017
  12. TRANYLCYPROMINE [Interacting]
     Active Substance: TRANYLCYPROMINE
     Indication: DRUG INEFFECTIVE
     Dosage: 30 MG, 1.5 TABLETS A DAY IN THE MORNING
     Route: 048
     Dates: start: 201810, end: 201811
  13. TRANYLCYPROMINE [Interacting]
     Active Substance: TRANYLCYPROMINE
     Indication: BIPOLAR II DISORDER
     Dosage: 2.5 TABLETS (50 MG) PER DAY IN THE MORNING
     Route: 048
     Dates: start: 2017, end: 2017
  14. TRANYLCYPROMINE [Interacting]
     Active Substance: TRANYLCYPROMINE
     Indication: BIPOLAR II DISORDER
     Dosage: 3 TABLETS (60 MG) PER DAY IN THE MORNING
     Route: 048
     Dates: start: 2017, end: 2017
  15. TRANYLCYPROMINE [Interacting]
     Active Substance: TRANYLCYPROMINE
     Indication: BIPOLAR II DISORDER
     Dosage: 1 TABLET (20 MG) PER DAY IN THE MORNING
     Route: 048
     Dates: start: 2017, end: 2017
  16. QUETIAPINE. [Suspect]
     Active Substance: QUETIAPINE
     Indication: SLEEP DISORDER
     Route: 048
  17. TRANYLCYPROMINE [Interacting]
     Active Substance: TRANYLCYPROMINE
     Indication: BIPOLAR II DISORDER
     Dosage: 0.5 MG TABLETS IN THE MORNING
     Route: 048
     Dates: start: 201808, end: 201809
  18. TRANYLCYPROMINE [Interacting]
     Active Substance: TRANYLCYPROMINE
     Indication: BIPOLAR II DISORDER
     Dosage: 20 MG, 1 TABLET PER DAY IN THE MORNING
     Route: 048
     Dates: start: 201809, end: 201810
  19. TRANYLCYPROMINE [Interacting]
     Active Substance: TRANYLCYPROMINE
     Indication: DRUG INEFFECTIVE
     Dosage: 1 TABLET (20 MG) PER DAY IN THE MORNING
     Route: 048
     Dates: start: 2017, end: 2017
  20. TRANYLCYPROMINE [Interacting]
     Active Substance: TRANYLCYPROMINE
     Indication: BIPOLAR II DISORDER
     Route: 048
     Dates: start: 201707, end: 201707
  21. TRANYLCYPROMINE [Interacting]
     Active Substance: TRANYLCYPROMINE
     Indication: DRUG INEFFECTIVE
     Route: 048
     Dates: start: 201707, end: 201707
  22. PRIADEL [Concomitant]
     Active Substance: LITHIUM
     Indication: MOOD SWINGS
  23. PRIADEL [Concomitant]
     Active Substance: LITHIUM
     Indication: BIPOLAR DISORDER
  24. TRANYLCYPROMINE [Interacting]
     Active Substance: TRANYLCYPROMINE
     Indication: BIPOLAR II DISORDER
     Dosage: 30 MG, 1.5 TABLETS A DAY IN THE MORNING
     Route: 048
     Dates: start: 201810, end: 201811
  25. TRANYLCYPROMINE [Interacting]
     Active Substance: TRANYLCYPROMINE
     Indication: BIPOLAR II DISORDER
     Dosage: 2 TABLETS (40 MG) PER DAY IN THE MORNING
     Route: 048
     Dates: start: 2017, end: 201801
  26. TRANYLCYPROMINE [Interacting]
     Active Substance: TRANYLCYPROMINE
     Indication: DRUG INEFFECTIVE
     Dosage: 20 MG, 2 TABLETS A DAY IN THE MORNING
     Route: 048
     Dates: start: 201811, end: 201901
  27. TRANYLCYPROMINE [Interacting]
     Active Substance: TRANYLCYPROMINE
     Indication: BIPOLAR II DISORDER
     Dosage: 20 MG, 2 TABLETS A DAY IN THE MORNING
     Route: 048
     Dates: start: 201811, end: 201901
  28. TRANYLCYPROMINE [Interacting]
     Active Substance: TRANYLCYPROMINE
     Indication: DRUG INEFFECTIVE
     Dosage: 50 MG, 2.5 TABLETS A DAY IN THE MORNING
     Route: 048
     Dates: start: 201901
  29. EUTHYROX [Concomitant]
     Active Substance: LEVOTHYROXINE SODIUM
     Indication: HYPERTHYROIDISM
     Dosage: 112UG/INHAL DAILY
  30. TRANYLCYPROMINE [Interacting]
     Active Substance: TRANYLCYPROMINE
     Indication: DRUG INEFFECTIVE
     Dosage: 2.5 TABLETS (50 MG) PER DAY IN THE MORNING
     Route: 048
     Dates: start: 2017, end: 2017
  31. TRANYLCYPROMINE [Interacting]
     Active Substance: TRANYLCYPROMINE
     Indication: DRUG INEFFECTIVE
     Dosage: 2 TABLETS (40 MG) PER DAY IN THE MORNING
     Route: 048
     Dates: start: 2017, end: 201801
  32. TRANYLCYPROMINE [Interacting]
     Active Substance: TRANYLCYPROMINE
     Indication: DRUG INEFFECTIVE
     Dosage: 2.5 TABLETS (50 MG) PER DAY IN THE MORNING
     Route: 048
     Dates: start: 2017, end: 2017
  33. TRANYLCYPROMINE [Interacting]
     Active Substance: TRANYLCYPROMINE
     Indication: DRUG INEFFECTIVE
     Dosage: 2 TABLETS (40 MG) PER DAY IN THE MORNING
     Route: 048
     Dates: start: 2017, end: 2017
  34. TRANYLCYPROMINE [Interacting]
     Active Substance: TRANYLCYPROMINE
     Indication: DRUG INEFFECTIVE
     Dosage: 20 MG, 1 TABLET PER DAY IN THE MORNING
     Route: 048
     Dates: start: 201809, end: 201810

REACTIONS (10)
  - Agitation [Unknown]
  - Hypertension [Not Recovered/Not Resolved]
  - Hyperhidrosis [Not Recovered/Not Resolved]
  - Hypertensive crisis [Recovered/Resolved]
  - Feeling hot [Not Recovered/Not Resolved]
  - Bradycardia [Recovered/Resolved]
  - Contraindicated product administered [Not Recovered/Not Resolved]
  - Dizziness [Unknown]
  - Chest pain [Unknown]
  - Palpitations [Not Recovered/Not Resolved]

NARRATIVE: CASE EVENT DATE: 201707
